FAERS Safety Report 19159110 (Version 3)
Quarter: 2021Q2

REPORT INFORMATION
  Report Type: Spontaneous
  Country: TR (occurrence: TR)
  Receive Date: 20210420
  Receipt Date: 20210510
  Transmission Date: 20210717
  Serious: Yes (Other)
  Sender: FDA-Public Use
  Company Number: TR-PFIZER INC-2021378883

PATIENT
  Age: 74 Year

DRUGS (2)
  1. REAMPLA [Suspect]
     Active Substance: PALBOCICLIB
     Dosage: UNK
     Dates: start: 2020
  2. LETROZOL [Concomitant]
     Active Substance: LETROZOLE
     Dosage: UNK
     Dates: start: 2020

REACTIONS (3)
  - Haemoglobin decreased [Recovering/Resolving]
  - Neutrophil count decreased [Recovering/Resolving]
  - Carbohydrate antigen 15-3 increased [Recovering/Resolving]

NARRATIVE: CASE EVENT DATE: 20201001
